FAERS Safety Report 10427907 (Version 1)
Quarter: 2014Q3

REPORT INFORMATION
  Report Type: Spontaneous
  Country: US (occurrence: None)
  Receive Date: 20140902
  Receipt Date: 20140902
  Transmission Date: 20150326
  Serious: No
  Sender: FDA-Public Use
  Company Number: None

PATIENT
  Age: 45 Year
  Sex: Female
  Weight: 46.27 kg

DRUGS (1)
  1. CREST PRO-HEALTH COMPLETE (CLEAN MINT) [Suspect]
     Active Substance: SODIUM FLUORIDE
     Indication: DENTAL DISORDER PROPHYLAXIS
     Dates: start: 20140830, end: 20140830

REACTIONS (4)
  - Glossodynia [None]
  - Dysgeusia [None]
  - Tongue discolouration [None]
  - Oral mucosal exfoliation [None]

NARRATIVE: CASE EVENT DATE: 20140830
